FAERS Safety Report 18271606 (Version 11)
Quarter: 2021Q1

REPORT INFORMATION
  Report Type: Report from Study
  Country: CN (occurrence: CN)
  Receive Date: 20200916
  Receipt Date: 20210318
  Transmission Date: 20210419
  Serious: Yes (Hospitalization, Disabling)
  Sender: FDA-Public Use
  Company Number: CN-ROCHE-2673283

PATIENT
  Age: 35 Year
  Sex: Female
  Weight: 55 kg

DRUGS (46)
  1. DEXAMETHASONE ACETATE [Concomitant]
     Active Substance: DEXAMETHASONE ACETATE
     Route: 048
     Dates: start: 20200826, end: 20200827
  2. DEXAMETHASONE ACETATE [Concomitant]
     Active Substance: DEXAMETHASONE ACETATE
     Route: 048
     Dates: start: 20200826, end: 20200826
  3. DEXAMETHASONE ACETATE [Concomitant]
     Active Substance: DEXAMETHASONE ACETATE
     Route: 048
     Dates: start: 20201028, end: 20201029
  4. DEXAMETHASONE ACETATE [Concomitant]
     Active Substance: DEXAMETHASONE ACETATE
     Dosage: PREVENT ALLERGIES
     Route: 048
     Dates: start: 20210101, end: 20210101
  5. DIAMMONIUM GLYCYRRHIZINATE [Concomitant]
     Active Substance: HERBALS\DIAMMONIUM GLYCYRRHIZINATE
     Dosage: PROTECT LIVER
     Route: 048
     Dates: start: 20200827, end: 20200901
  6. LEUCOGEN TABLETS [Concomitant]
     Dosage: PREVENT LEUKOPENIA AND THROMBOCYTOPENIA
     Route: 048
     Dates: start: 20200827, end: 20200911
  7. FOLIC ACID. [Concomitant]
     Active Substance: FOLIC ACID
     Dates: start: 20200819
  8. DEXAMETHASONE ACETATE [Concomitant]
     Active Substance: DEXAMETHASONE ACETATE
     Route: 048
     Dates: start: 20200828, end: 20200828
  9. GLUTATHIONE [Concomitant]
     Active Substance: GLUTATHIONE
     Route: 042
     Dates: start: 20200902, end: 20200904
  10. GLUTATHIONE [Concomitant]
     Active Substance: GLUTATHIONE
     Route: 048
     Dates: start: 20200827, end: 20200901
  11. BETAMETHASONE SODIUM PHOSPHATE [Concomitant]
     Active Substance: BETAMETHASONE SODIUM PHOSPHATE
     Dosage: PREVENT ALLERGIES
     Route: 042
     Dates: start: 20201210, end: 20201210
  12. DEXAMETHASONE ACETATE [Concomitant]
     Active Substance: DEXAMETHASONE ACETATE
     Dosage: PREVENT ALLERGIES
     Route: 048
     Dates: start: 20201118, end: 20201118
  13. OMEPRAZOLE MAGNESIUM. [Concomitant]
     Active Substance: OMEPRAZOLE MAGNESIUM
     Route: 048
     Dates: start: 20200827, end: 20200910
  14. GLUTATHIONE [Concomitant]
     Active Substance: GLUTATHIONE
     Route: 048
     Dates: start: 20200902, end: 20200904
  15. LEUCOGEN TABLETS [Concomitant]
     Dosage: PREVENT GRANULOCYTOSIS.
     Dates: start: 20201028, end: 20201112
  16. LANSOPRAZOLE. [Concomitant]
     Active Substance: LANSOPRAZOLE
     Dosage: PROTECT THE STOMACH
     Dates: start: 20201210, end: 20201214
  17. ONDANSETRON HYDROCHLORIDE. [Concomitant]
     Active Substance: ONDANSETRON HYDROCHLORIDE
     Dosage: PREVENT NAUSEA AND VOMITING
     Dates: start: 20201028, end: 20201102
  18. BEVACIZUMAB. [Suspect]
     Active Substance: BEVACIZUMAB
     Indication: NON-SMALL CELL LUNG CANCER
     Dosage: MOST RECENT DOSE PRIOR TO SERIOUS ADVERSE EVENT ONSET: 26/AUG/2020 (825 MG)
     Route: 042
     Dates: start: 20200826
  19. DEXAMETHASONE ACETATE [Concomitant]
     Active Substance: DEXAMETHASONE ACETATE
     Dosage: PREVENT ALLERGIES
     Route: 048
     Dates: start: 20201119, end: 20201120
  20. GLUTATHIONE [Concomitant]
     Active Substance: GLUTATHIONE
     Dates: start: 20200905, end: 20200907
  21. GLUTATHIONE [Concomitant]
     Active Substance: GLUTATHIONE
     Dosage: PROTECT LIVER
     Dates: start: 20201028, end: 20201108
  22. LEUCOGEN TABLETS [Concomitant]
     Dates: start: 20201209
  23. URSODEOXYCHOLIC ACID [Concomitant]
     Active Substance: URSODIOL
     Dosage: PROTECT LIVER
     Dates: start: 20201014
  24. LANSOPRAZOLE. [Concomitant]
     Active Substance: LANSOPRAZOLE
     Route: 048
     Dates: start: 20201026, end: 20201026
  25. LANSOPRAZOLE. [Concomitant]
     Active Substance: LANSOPRAZOLE
     Dosage: PROTECT THE STOMACH
     Dates: start: 20210101, end: 20210107
  26. PEMETREXED. [Suspect]
     Active Substance: PEMETREXED
     Indication: NON-SMALL CELL LUNG CANCER
     Dosage: MOST RECENT DOSE PRIOR TO SERIOUS ADVERSE EVENT ONSET: 26/AUG/2020 (755 MG)
     Route: 042
     Dates: start: 20200826
  27. OMEPRAZOLE MAGNESIUM. [Concomitant]
     Active Substance: OMEPRAZOLE MAGNESIUM
     Route: 048
     Dates: start: 20200825, end: 20200825
  28. DIAMMONIUM GLYCYRRHIZINATE [Concomitant]
     Active Substance: HERBALS\DIAMMONIUM GLYCYRRHIZINATE
     Route: 042
     Dates: start: 20200902, end: 20200904
  29. DIAMMONIUM GLYCYRRHIZINATE [Concomitant]
     Active Substance: HERBALS\DIAMMONIUM GLYCYRRHIZINATE
     Route: 048
     Dates: start: 20200902, end: 20200904
  30. DIAMMONIUM GLYCYRRHIZINATE [Concomitant]
     Active Substance: HERBALS\DIAMMONIUM GLYCYRRHIZINATE
     Dosage: PROTECT LIVER
     Dates: start: 20201028, end: 20201103
  31. GLUTATHIONE [Concomitant]
     Active Substance: GLUTATHIONE
     Dosage: PROTECT LIVER
     Dates: start: 20201120, end: 20201201
  32. BICYCLOL [Concomitant]
     Active Substance: BICYCLOL
     Dosage: PROTECT LIVER
     Dates: start: 20201014
  33. LANSOPRAZOLE. [Concomitant]
     Active Substance: LANSOPRAZOLE
     Dosage: PROTECT THE STOMACH
     Dates: start: 20201028, end: 20201103
  34. ONDANSETRON HYDROCHLORIDE. [Concomitant]
     Active Substance: ONDANSETRON HYDROCHLORIDE
     Dosage: PREVENT NAUSEA AND VOMITING
     Dates: start: 20210101, end: 20210106
  35. TROPISETRON HYDROCHLORIDE [Concomitant]
     Active Substance: TROPISETRON HYDROCHLORIDE
     Dosage: PREVENT NAUSEA AND VOMITING
     Dates: start: 20201210, end: 20201210
  36. DEXAMETHASONE ACETATE [Concomitant]
     Active Substance: DEXAMETHASONE ACETATE
     Dosage: PREVENT ALLERGIES
     Route: 048
     Dates: start: 20201209, end: 20201209
  37. DEXAMETHASONE ACETATE [Concomitant]
     Active Substance: DEXAMETHASONE ACETATE
     Dosage: PREVENT ALLERGIES
     Route: 048
     Dates: start: 20201230, end: 20201231
  38. LANSOPRAZOLE. [Concomitant]
     Active Substance: LANSOPRAZOLE
     Dosage: PROTECT THE STOMACH
     Dates: start: 20201120, end: 20201126
  39. LANSOPRAZOLE. [Concomitant]
     Active Substance: LANSOPRAZOLE
     Dosage: PROTECT THE STOMACH
     Dates: start: 20201210, end: 20201210
  40. CARBOPLATIN. [Suspect]
     Active Substance: CARBOPLATIN
     Indication: NON-SMALL CELL LUNG CANCER
     Dosage: INITIAL TARGET AUC OF 6 MG/ML/MIN?MOST RECENT DOSE PRIOR TO SERIOUS ADVERSE EVENT ONSET: 26/AUG/2020
     Route: 042
     Dates: start: 20200826
  41. LEUCOGEN TABLETS [Concomitant]
     Dosage: PREVENT GRANULOCYTOSIS
     Dates: start: 20201120, end: 20201205
  42. ONDANSETRON HYDROCHLORIDE. [Concomitant]
     Active Substance: ONDANSETRON HYDROCHLORIDE
     Dosage: PREVENT NAUSEA AND VOMITING
     Dates: start: 20201210, end: 20201214
  43. PLACEBO [Suspect]
     Active Substance: UNSPECIFIED INGREDIENT
     Indication: NON-SMALL CELL LUNG CANCER
     Dosage: MOST RECENT DOSE PRIOR TO SERIOUS ADVERSE EVENT ONSET: 26/AUG/2020
     Route: 042
     Dates: start: 20200826
  44. DEXAMETHASONE ACETATE [Concomitant]
     Active Substance: DEXAMETHASONE ACETATE
     Route: 048
     Dates: start: 20200825, end: 20200825
  45. DIAMMONIUM GLYCYRRHIZINATE [Concomitant]
     Active Substance: HERBALS\DIAMMONIUM GLYCYRRHIZINATE
     Route: 048
     Dates: start: 20200906, end: 20200916
  46. ONDANSETRON HYDROCHLORIDE. [Concomitant]
     Active Substance: ONDANSETRON HYDROCHLORIDE
     Dosage: PREVENT NAUSEA AND VOMITING
     Dates: start: 20201120, end: 20201120

REACTIONS (1)
  - Hepatic function abnormal [Not Recovered/Not Resolved]

NARRATIVE: CASE EVENT DATE: 20200901
